FAERS Safety Report 7833647-0 (Version None)
Quarter: 2011Q4

REPORT INFORMATION
  Report Type: 
  Country: None (occurrence: None)
  Receive Date: 20111024
  Receipt Date: 20111014
  Transmission Date: 20120403
  Serious: Yes (Hospitalization)
  Sender: FDA-Public Use
  Company Number: FR-SANOFI-AVENTIS-2011SA045812

PATIENT
  Age: 73 Year
  Sex: Male
  Weight: 67 kg

DRUGS (7)
  1. INDAPAMIDE [Concomitant]
     Route: 048
     Dates: start: 20100101
  2. MULTAQ [Suspect]
     Indication: ATRIAL FIBRILLATION
     Route: 048
     Dates: start: 20101027, end: 20110608
  3. PRAVASTATIN [Concomitant]
     Route: 048
     Dates: start: 20091001, end: 20110420
  4. IPERTEN [Concomitant]
     Route: 048
     Dates: start: 20110401
  5. CORONARY VASODILATORS [Concomitant]
     Route: 048
     Dates: start: 20091101, end: 20110530
  6. ALISKIREN [Concomitant]
     Route: 048
     Dates: start: 20100101
  7. PLAVIX [Concomitant]
     Route: 048
     Dates: start: 20050101

REACTIONS (2)
  - MYALGIA [None]
  - GAIT DISTURBANCE [None]
